FAERS Safety Report 20986355 (Version 1)
Quarter: 2022Q2

REPORT INFORMATION
  Report Type: Report from Study
  Country: CA (occurrence: CA)
  Receive Date: 20220621
  Receipt Date: 20220621
  Transmission Date: 20220721
  Serious: Yes (Hospitalization, Other)
  Sender: FDA-Public Use
  Company Number: None

PATIENT
  Sex: Male

DRUGS (4)
  1. QUETIAPINE [Suspect]
     Active Substance: QUETIAPINE
     Indication: Anger
     Dosage: 1 EVERY 1 DAYS
     Route: 048
  2. HUMIRA [Suspect]
     Active Substance: ADALIMUMAB
     Indication: Hidradenitis
     Dosage: 1 EVERY 1 WEEKS
     Route: 058
  3. COVID-19 VACCINE [Concomitant]
     Indication: COVID-19 prophylaxis
     Route: 030
  4. QUETIAPINE FUMARATE [Concomitant]
     Active Substance: QUETIAPINE FUMARATE
     Indication: Product used for unknown indication
     Route: 048

REACTIONS (25)
  - Agitation [Not Recovered/Not Resolved]
  - Anger [Not Recovered/Not Resolved]
  - Asthenia [Not Recovered/Not Resolved]
  - Blood urine present [Not Recovered/Not Resolved]
  - Concussion [Not Recovered/Not Resolved]
  - Dysarthria [Not Recovered/Not Resolved]
  - Dysuria [Not Recovered/Not Resolved]
  - Enuresis [Not Recovered/Not Resolved]
  - Facial pain [Not Recovered/Not Resolved]
  - Fall [Unknown]
  - Fatigue [Not Recovered/Not Resolved]
  - Feeling abnormal [Not Recovered/Not Resolved]
  - Gait inability [Not Recovered/Not Resolved]
  - General symptom [Not Recovered/Not Resolved]
  - Headache [Not Recovered/Not Resolved]
  - Hypersomnia [Not Recovered/Not Resolved]
  - Mobility decreased [Not Recovered/Not Resolved]
  - Muscular weakness [Not Recovered/Not Resolved]
  - Pain in extremity [Not Recovered/Not Resolved]
  - Pollakiuria [Not Recovered/Not Resolved]
  - Seizure [Not Recovered/Not Resolved]
  - Somnolence [Not Recovered/Not Resolved]
  - Urinary tract infection [Not Recovered/Not Resolved]
  - Weight decreased [Not Recovered/Not Resolved]
  - Condition aggravated [Unknown]
